FAERS Safety Report 20237499 (Version 1)
Quarter: 2021Q4

REPORT INFORMATION
  Report Type: Spontaneous
  Country: FR (occurrence: FR)
  Receive Date: 20211228
  Receipt Date: 20211228
  Transmission Date: 20220304
  Serious: Yes (Hospitalization)
  Sender: FDA-Public Use
  Company Number: None

PATIENT
  Age: 56 Year
  Sex: Female
  Weight: 60 kg

DRUGS (2)
  1. ZOLMITRIPTAN [Suspect]
     Active Substance: ZOLMITRIPTAN
     Indication: Migraine
     Dosage: UNK, NON CONNUE
     Route: 048
     Dates: start: 20210918, end: 20210918
  2. FROVATRIPTAN SUCCINATE [Suspect]
     Active Substance: FROVATRIPTAN SUCCINATE
     Indication: Migraine
     Dosage: UNK, NON CONNUE
     Route: 048
     Dates: start: 20210918, end: 20210918

REACTIONS (1)
  - Renal infarct [Unknown]

NARRATIVE: CASE EVENT DATE: 20210920
